FAERS Safety Report 12835025 (Version 3)
Quarter: 2016Q4

REPORT INFORMATION
  Report Type: Spontaneous
  Country: JP (occurrence: JP)
  Receive Date: 20161010
  Receipt Date: 20161025
  Transmission Date: 20170207
  Serious: Yes (Death, Hospitalization, Other)
  Sender: FDA-Public Use
  Company Number: JP-SHIRE-JP201614457

PATIENT
  Age: 31 Year
  Sex: Male

DRUGS (1)
  1. ELAPRASE [Suspect]
     Active Substance: IDURSULFASE
     Indication: MUCOPOLYSACCHARIDOSIS II
     Dosage: 24 MG, 1X/WEEK
     Route: 041
     Dates: end: 20160921

REACTIONS (2)
  - Loss of consciousness [Fatal]
  - Pneumonia [Fatal]

NARRATIVE: CASE EVENT DATE: 20160923
